FAERS Safety Report 11568351 (Version 2)
Quarter: 2015Q4

REPORT INFORMATION
  Report Type: Report from Study
  Country: FR (occurrence: FR)
  Receive Date: 20150929
  Receipt Date: 20151103
  Transmission Date: 20160304
  Serious: Yes (Death, Other)
  Sender: FDA-Public Use
  Company Number: FR-ROCHE-1637251

PATIENT

DRUGS (16)
  1. IRINOTECAN [Suspect]
     Active Substance: IRINOTECAN
     Indication: HEPATOBILIARY CANCER
     Route: 065
  2. OXALIPLATIN. [Suspect]
     Active Substance: OXALIPLATIN
     Indication: HEPATOBILIARY CANCER
     Route: 065
  3. SORAFENIB [Suspect]
     Active Substance: SORAFENIB
     Indication: HEPATOBILIARY CANCER
     Route: 065
  4. FLUOROURACIL. [Suspect]
     Active Substance: FLUOROURACIL
     Route: 040
  5. CISPLATIN. [Suspect]
     Active Substance: CISPLATIN
     Indication: HEPATOBILIARY CANCER
     Route: 065
  6. GEMCITABINE [Suspect]
     Active Substance: GEMCITABINE\GEMCITABINE HYDROCHLORIDE
     Indication: HEPATOBILIARY CANCER
     Route: 065
  7. ERLOTINIB [Suspect]
     Active Substance: ERLOTINIB
     Indication: HEPATOBILIARY CANCER
     Route: 065
  8. FOLINIC ACID [Suspect]
     Active Substance: LEUCOVORIN
     Indication: HEPATOBILIARY CANCER
     Route: 065
  9. DOCETAXEL. [Suspect]
     Active Substance: DOCETAXEL
     Indication: HEPATOBILIARY CANCER
     Route: 065
  10. CARBOPLATIN. [Suspect]
     Active Substance: CARBOPLATIN
     Indication: HEPATOBILIARY CANCER
     Route: 065
  11. CAPECITABINE. [Suspect]
     Active Substance: CAPECITABINE
     Indication: HEPATOBILIARY CANCER
     Route: 065
  12. CETUXIMAB [Suspect]
     Active Substance: CETUXIMAB
     Indication: HEPATOBILIARY CANCER
     Route: 065
  13. MITOMYCIN. [Suspect]
     Active Substance: MITOMYCIN
     Indication: HEPATOBILIARY CANCER
     Route: 065
  14. FLUOROURACIL. [Suspect]
     Active Substance: FLUOROURACIL
     Indication: HEPATOBILIARY CANCER
     Route: 042
  15. SUNITINIB [Suspect]
     Active Substance: SUNITINIB
     Indication: HEPATOBILIARY CANCER
     Route: 065
  16. PACLITAXEL. [Suspect]
     Active Substance: PACLITAXEL
     Indication: HEPATOBILIARY CANCER
     Route: 065

REACTIONS (13)
  - Neutropenia [Unknown]
  - Vomiting [Unknown]
  - Cholangitis [Unknown]
  - Diarrhoea [Unknown]
  - Prerenal failure [Fatal]
  - Neuropathy peripheral [Unknown]
  - Anaemia [Unknown]
  - Biliary sepsis [Unknown]
  - Renal failure [Fatal]
  - Mucosal inflammation [Unknown]
  - Thrombocytopenia [Unknown]
  - Nausea [Unknown]
  - Neurotoxicity [Unknown]
